FAERS Safety Report 6506629-9 (Version None)
Quarter: 2009Q4

REPORT INFORMATION
  Report Type: 
  Country: None (occurrence: None)
  Receive Date: 20091216
  Receipt Date: 20091204
  Transmission Date: 20100525
  Serious: Yes (Other)
  Sender: FDA-Public Use
  Company Number: 2009SP040473

PATIENT
  Age: 28 Year
  Sex: Female

DRUGS (2)
  1. REMERON [Suspect]
     Indication: DRUG USE FOR UNKNOWN INDICATION
     Dates: start: 20091120
  2. REBIF [Suspect]
     Indication: MULTIPLE SCLEROSIS
     Dosage: 8.8 MCG; TIW; SC
     Route: 058
     Dates: start: 20091116

REACTIONS (1)
  - SUICIDAL IDEATION [None]
